FAERS Safety Report 8224860-1 (Version None)
Quarter: 2012Q1

REPORT INFORMATION
  Report Type: 
  Country: None (occurrence: None)
  Receive Date: 20120321
  Receipt Date: 20120312
  Transmission Date: 20120608
  Serious: Yes (Hospitalization)
  Sender: FDA-Public Use
  Company Number: US-ASTRAZENECA-2012SE13160

PATIENT
  Age: 26726 Day
  Sex: Female

DRUGS (8)
  1. LEVOTHYROXINE SODIUM [Concomitant]
     Indication: HYPOTHYROIDISM
     Route: 048
  2. PLAVIX [Suspect]
     Indication: CORONARY ARTERY DISEASE
     Route: 048
     Dates: start: 20110630, end: 20111018
  3. ALENDRONATE SODIUM [Concomitant]
     Indication: HYPOTHYROIDISM
     Route: 048
  4. LIPITOR [Concomitant]
     Indication: MYOCARDIAL INFARCTION
     Route: 048
  5. VESICARE [Concomitant]
     Indication: INCONTINENCE
     Route: 048
  6. EFFEXOR [Concomitant]
     Indication: DEPRESSION
     Route: 048
  7. ASPIRIN [Concomitant]
     Route: 048
  8. PLAVIX [Suspect]
     Route: 048
     Dates: start: 20111109, end: 20111122

REACTIONS (1)
  - IMPAIRED HEALING [None]
